FAERS Safety Report 10750582 (Version 1)
Quarter: 2015Q1

REPORT INFORMATION
  Report Type: Spontaneous
  Country: FR (occurrence: None)
  Receive Date: 20150114
  Receipt Date: 20150114
  Transmission Date: 20150721
  Serious: Yes (Life-Threatening)
  Sender: FDA-Public Use
  Company Number: ALB-008-14-FR

PATIENT
  Age: 50 Year
  Sex: Male

DRUGS (14)
  1. VANCOMYCIN [Suspect]
     Active Substance: VANCOMYCIN
     Indication: ANTIBIOTIC THERAPY
     Route: 042
     Dates: start: 20141029, end: 20141116
  2. OXYCODONE HYDROCHLORIDE. [Concomitant]
     Active Substance: OXYCODONE HYDROCHLORIDE
  3. KETAMINE [Suspect]
     Active Substance: KETAMINE
     Indication: PAIN
     Route: 042
     Dates: start: 20141110, end: 20141118
  4. HUMAN ALBUMIN (SPRINGE/VIENNA) (HUMAN ALBUMIN) [Suspect]
     Active Substance: ALBUMIN (HUMAN)
     Indication: PRODUCT USED FOR UNKNOWN INDICATION
     Route: 042
     Dates: start: 20140311, end: 20141115
  5. FUROSEMIDE. [Suspect]
     Active Substance: FUROSEMIDE
     Indication: OEDEMA
     Route: 042
     Dates: start: 20141103, end: 20141115
  6. LANSOPRAZOLE. [Concomitant]
     Active Substance: LANSOPRAZOLE
  7. CIPROFLOXACIN. [Concomitant]
     Active Substance: CIPROFLOXACIN
  8. PREGABALIN. [Concomitant]
     Active Substance: PREGABALIN
  9. TINZAPARIN SODIUM [Concomitant]
     Active Substance: TINZAPARIN SODIUM
  10. NEFOPAM [Concomitant]
     Active Substance: NEFOPAM
  11. GEMZAR [Suspect]
     Active Substance: GEMCITABINE HYDROCHLORIDE
     Indication: CHONDROSARCOMA
     Route: 042
     Dates: start: 20141027, end: 20141027
  12. PARACETAMOL [Concomitant]
     Active Substance: ACETAMINOPHEN
  13. LACTULOSE. [Concomitant]
     Active Substance: LACTULOSE
  14. CEFTAZIDIME. [Concomitant]
     Active Substance: CEFTAZIDIME

REACTIONS (14)
  - Rash maculo-papular [None]
  - Pyrexia [None]
  - Acute kidney injury [None]
  - Chills [None]
  - Hypotension [None]
  - Pain [None]
  - Oliguria [None]
  - Drug reaction with eosinophilia and systemic symptoms [None]
  - Sepsis [None]
  - Pseudomonas test positive [None]
  - Dry skin [None]
  - Rash pruritic [None]
  - Hyperhidrosis [None]
  - Tachycardia [None]

NARRATIVE: CASE EVENT DATE: 20141113
